FAERS Safety Report 9467226 (Version 1)
Quarter: 2013Q3

REPORT INFORMATION
  Report Type: Spontaneous
  Country: IN (occurrence: IN)
  Receive Date: 20130821
  Receipt Date: 20130821
  Transmission Date: 20140515
  Serious: Yes (Death)
  Sender: FDA-Public Use
  Company Number: IN-009507513-1308IND008513

PATIENT
  Age: 75 Year
  Sex: Female

DRUGS (1)
  1. JANUMET [Suspect]
     Dosage: STRENGTH: 50/500; FREQUENCY: 2TIMES
     Route: 048

REACTIONS (1)
  - Death [Fatal]
